FAERS Safety Report 22649237 (Version 3)
Quarter: 2023Q4

REPORT INFORMATION
  Report Type: Spontaneous
  Country: US (occurrence: US)
  Receive Date: 20230628
  Receipt Date: 20231120
  Transmission Date: 20240110
  Serious: No
  Sender: FDA-Public Use
  Company Number: US-Ipsen Biopharmaceuticals, Inc.-2023-15414

PATIENT
  Age: 72 Year
  Sex: Female

DRUGS (3)
  1. DYSPORT [Suspect]
     Active Substance: ABOBOTULINUMTOXINA
     Indication: Skin wrinkling
     Dosage: UNKNOWN
     Route: 065
     Dates: start: 20230531, end: 20230531
  2. DYSPORT [Suspect]
     Active Substance: ABOBOTULINUMTOXINA
     Indication: Off label use
  3. DYSPORT [Suspect]
     Active Substance: ABOBOTULINUMTOXINA
     Indication: Skin wrinkling

REACTIONS (3)
  - Paranasal sinus discomfort [Not Recovered/Not Resolved]
  - Nasal congestion [Not Recovered/Not Resolved]
  - Off label use [Unknown]

NARRATIVE: CASE EVENT DATE: 20230531
